FAERS Safety Report 6579989-0 (Version None)
Quarter: 2010Q1

REPORT INFORMATION
  Report Type: 
  Country: None (occurrence: None)
  Receive Date: 20100212
  Receipt Date: 20100204
  Transmission Date: 20100710
  Serious: Yes (Hospitalization)
  Sender: FDA-Public Use
  Company Number: FR-NOVOPROD-303263

PATIENT
  Age: 66 Year
  Sex: Female

DRUGS (15)
  1. NOVOMIX 30 [Suspect]
     Indication: TYPE 2 DIABETES MELLITUS
     Dosage: UK
     Route: 065
  2. BUMEX [Concomitant]
     Indication: DRUG USE FOR UNKNOWN INDICATION
     Dosage: 5 MG/PO
     Route: 048
     Dates: start: 20090216
  3. ACTISKENAN [Concomitant]
     Indication: DRUG USE FOR UNKNOWN INDICATION
     Dosage: 20 MG/PO
     Route: 048
     Dates: start: 20090219
  4. RIVOTRIL [Concomitant]
     Indication: DRUG USE FOR UNKNOWN INDICATION
     Dosage: 20 DROPS, QD
     Dates: start: 20090218
  5. HEMIGOXINE [Concomitant]
     Indication: ATRIAL FIBRILLATION
     Dosage: 0.125 MG/PO
     Route: 048
  6. DEPAMIDE [Concomitant]
     Indication: DRUG USE FOR UNKNOWN INDICATION
     Dosage: 900 MG/PO, QD
     Route: 048
  7. PREVISCAN                          /00789001/ [Concomitant]
     Indication: ATRIAL FIBRILLATION
     Dosage: 20 MG, QD
     Route: 048
  8. THERALENE [Concomitant]
     Indication: INSOMNIA
     Dosage: 30 DROPS, QD
     Route: 048
     Dates: end: 20090227
  9. OROKEN [Concomitant]
     Indication: URINARY TRACT INFECTION
     Dosage: 400 MG, QD
     Route: 048
     Dates: start: 20090218, end: 20090227
  10. SPASFON LYOC [Concomitant]
     Indication: GASTROINTESTINAL DISORDER
     Dosage: 480 MG, QD
     Route: 048
     Dates: end: 20090227
  11. ACUPAN [Concomitant]
     Indication: DRUG USE FOR UNKNOWN INDICATION
     Dosage: 80 MG, QD
     Route: 042
     Dates: start: 20090221, end: 20090227
  12. APROVEL [Concomitant]
     Indication: DRUG USE FOR UNKNOWN INDICATION
     Dosage: 150 MG, QD
     Route: 048
  13. DOLIPRANE [Concomitant]
     Indication: DRUG USE FOR UNKNOWN INDICATION
     Dosage: UNK
  14. EFFERALGAN CODEIN [Concomitant]
     Indication: DRUG USE FOR UNKNOWN INDICATION
     Dosage: 1590 MG, UNK
     Dates: start: 20090216, end: 20090218
  15. LASIX [Concomitant]
     Indication: DRUG USE FOR UNKNOWN INDICATION
     Dosage: UNK
     Dates: end: 20090216

REACTIONS (1)
  - THROMBOCYTOPENIA [None]
